FAERS Safety Report 7087444-7 (Version None)
Quarter: 2010Q4

REPORT INFORMATION
  Report Type: 
  Country: None (occurrence: None)
  Receive Date: 20101108
  Receipt Date: 20101028
  Transmission Date: 20110411
  Serious: No
  Sender: FDA-Public Use
  Company Number: US-BIOGENIDEC-2010BI036025

PATIENT
  Sex: Female

DRUGS (2)
  1. TYSABRI [Suspect]
     Indication: MULTIPLE SCLEROSIS
     Route: 042
     Dates: start: 20080701
  2. TYSABRI [Suspect]
     Route: 042
     Dates: start: 20100916

REACTIONS (5)
  - CATHETER SITE SWELLING [None]
  - DEVICE DIFFICULT TO USE [None]
  - FATIGUE [None]
  - POOR VENOUS ACCESS [None]
  - UNDERDOSE [None]
